FAERS Safety Report 12338216 (Version 1)
Quarter: 2016Q2

REPORT INFORMATION
  Report Type: Spontaneous
  Country: SE (occurrence: SE)
  Receive Date: 20160505
  Receipt Date: 20160505
  Transmission Date: 20160815
  Serious: Yes (Death)
  Sender: FDA-Public Use
  Company Number: SE-BIOGEN-2016BI00230246

PATIENT
  Sex: Male

DRUGS (1)
  1. FAMPYRA [Suspect]
     Active Substance: DALFAMPRIDINE
     Indication: MYASTHENIC SYNDROME
     Route: 065

REACTIONS (2)
  - Intentional product use issue [Unknown]
  - Myocardial infarction [Fatal]
